FAERS Safety Report 9216360 (Version 2)
Quarter: 2013Q2

REPORT INFORMATION
  Report Type: Spontaneous
  Country: GB (occurrence: None)
  Receive Date: 20130404
  Receipt Date: 20130410
  Transmission Date: 20140414
  Serious: Yes (Other)
  Sender: FDA-Public Use
  Company Number: AUR-APL-2013-02731

PATIENT
  Age: 35 Year
  Sex: Female
  Weight: 80.6 kg

DRUGS (2)
  1. CITALOPRAM [Suspect]
     Indication: PRODUCT USED FOR UNKNOWN INDICATION
     Dates: start: 20130108
  2. MICROGYNON (EUGYNON /00022701/) [Concomitant]

REACTIONS (1)
  - Rash pruritic [None]
